FAERS Safety Report 20946887 (Version 2)
Quarter: 2023Q2

REPORT INFORMATION
  Report Type: Report from Study
  Country: DE (occurrence: DE)
  Receive Date: 20220610
  Receipt Date: 20230613
  Transmission Date: 20230722
  Serious: Yes (Other)
  Sender: FDA-Public Use
  Company Number: DE-TAKEDA-2022TUS037518

PATIENT
  Age: 6 Year
  Sex: Female

DRUGS (19)
  1. TEDUGLUTIDE [Suspect]
     Active Substance: TEDUGLUTIDE
     Indication: Short-bowel syndrome
     Dosage: 0.6 MILLIGRAM, QD
     Route: 042
     Dates: start: 20191206, end: 20200708
  2. TEDUGLUTIDE [Suspect]
     Active Substance: TEDUGLUTIDE
     Indication: Short-bowel syndrome
     Dosage: 0.6 MILLIGRAM, QD
     Route: 042
     Dates: start: 20191206, end: 20200708
  3. TEDUGLUTIDE [Suspect]
     Active Substance: TEDUGLUTIDE
     Indication: Short-bowel syndrome
     Dosage: 0.6 MILLIGRAM, QD
     Route: 042
     Dates: start: 20191206, end: 20200708
  4. TEDUGLUTIDE [Suspect]
     Active Substance: TEDUGLUTIDE
     Indication: Short-bowel syndrome
     Dosage: 0.6 MILLIGRAM, QD
     Route: 042
     Dates: start: 20191206, end: 20200708
  5. TEDUGLUTIDE [Suspect]
     Active Substance: TEDUGLUTIDE
     Dosage: 0.65 MILLIGRAM, QD
     Route: 042
     Dates: start: 20200709, end: 20210228
  6. TEDUGLUTIDE [Suspect]
     Active Substance: TEDUGLUTIDE
     Dosage: 0.65 MILLIGRAM, QD
     Route: 042
     Dates: start: 20200709, end: 20210228
  7. TEDUGLUTIDE [Suspect]
     Active Substance: TEDUGLUTIDE
     Dosage: 0.65 MILLIGRAM, QD
     Route: 042
     Dates: start: 20200709, end: 20210228
  8. TEDUGLUTIDE [Suspect]
     Active Substance: TEDUGLUTIDE
     Dosage: 0.65 MILLIGRAM, QD
     Route: 042
     Dates: start: 20200709, end: 20210228
  9. TEDUGLUTIDE [Suspect]
     Active Substance: TEDUGLUTIDE
     Dosage: 0.75 MILLIGRAM, QD
     Route: 042
     Dates: start: 20210301, end: 20220515
  10. TEDUGLUTIDE [Suspect]
     Active Substance: TEDUGLUTIDE
     Dosage: 0.75 MILLIGRAM, QD
     Route: 042
     Dates: start: 20210301, end: 20220515
  11. TEDUGLUTIDE [Suspect]
     Active Substance: TEDUGLUTIDE
     Dosage: 0.75 MILLIGRAM, QD
     Route: 042
     Dates: start: 20210301, end: 20220515
  12. TEDUGLUTIDE [Suspect]
     Active Substance: TEDUGLUTIDE
     Dosage: 0.75 MILLIGRAM, QD
     Route: 042
     Dates: start: 20210301, end: 20220515
  13. TEDUGLUTIDE [Suspect]
     Active Substance: TEDUGLUTIDE
     Dosage: 0.85 MILLIGRAM, QD
     Route: 042
     Dates: start: 20220516
  14. TEDUGLUTIDE [Suspect]
     Active Substance: TEDUGLUTIDE
     Dosage: 0.85 MILLIGRAM, QD
     Route: 042
     Dates: start: 20220516
  15. TEDUGLUTIDE [Suspect]
     Active Substance: TEDUGLUTIDE
     Dosage: 0.85 MILLIGRAM, QD
     Route: 042
     Dates: start: 20220516
  16. TEDUGLUTIDE [Suspect]
     Active Substance: TEDUGLUTIDE
     Dosage: 0.85 MILLIGRAM, QD
     Route: 042
     Dates: start: 20220516
  17. IBUPROFEN [Concomitant]
     Active Substance: IBUPROFEN
     Indication: Viral infection
     Dosage: 160 MILLIGRAM, QID
     Route: 065
     Dates: start: 20210702, end: 20210702
  18. ZINC ASPARTATE [Concomitant]
     Active Substance: ZINC ASPARTATE
     Indication: Malabsorption
     Dosage: 1.65 MILLILITER, 3/WEEK
     Route: 042
     Dates: start: 20201023
  19. ERGOCALCIFEROL\PHYTONADIONE\TOCOPHEROL\VITAMIN A PALMITATE [Concomitant]
     Active Substance: ERGOCALCIFEROL\PHYTONADIONE\TOCOPHEROL\VITAMIN A PALMITATE
     Indication: Malabsorption
     Dosage: 10 MILLILITER, 3/WEEK
     Route: 042
     Dates: start: 20201023

REACTIONS (4)
  - Device related thrombosis [Recovered/Resolved]
  - Thrombosis [Recovered/Resolved]
  - Hyperaldosteronism [Recovered/Resolved]
  - Metabolic acidosis [Recovered/Resolved]

NARRATIVE: CASE EVENT DATE: 20220512
